FAERS Safety Report 9984834 (Version 1)
Quarter: 2014Q1

REPORT INFORMATION
  Report Type: Report from Study
  Country: US (occurrence: US)
  Receive Date: 20140307
  Receipt Date: 20140307
  Transmission Date: 20141002
  Serious: No
  Sender: FDA-Public Use
  Company Number: US-ABBVIE-14P-163-1186224-00

PATIENT
  Sex: Female

DRUGS (13)
  1. HUMIRA [Suspect]
     Indication: PSORIASIS
     Dates: start: 2006
  2. AMLODIPINE [Concomitant]
     Indication: BLOOD PRESSURE
     Route: 048
  3. LISINOPRIL HCTZ [Concomitant]
     Indication: BLOOD PRESSURE
     Dosage: 20/12.5 MG
     Route: 048
  4. GUANFACINE [Concomitant]
     Indication: BLOOD PRESSURE
     Route: 048
  5. ATENOLOL [Concomitant]
     Indication: BLOOD PRESSURE
     Route: 048
  6. WELLBUTRIN [Concomitant]
     Indication: EX-TOBACCO USER
     Route: 048
  7. PRAVASTATIN [Concomitant]
     Indication: BLOOD CHOLESTEROL INCREASED
     Route: 048
  8. TOVIAZ [Concomitant]
     Indication: PRODUCT USED FOR UNKNOWN INDICATION
  9. BENICAR [Concomitant]
     Indication: PRODUCT USED FOR UNKNOWN INDICATION
  10. ASA [Concomitant]
     Indication: PROPHYLAXIS
  11. ALLERGY MEDICATION [Concomitant]
     Indication: SEASONAL ALLERGY
  12. ALLERGY MEDICATION [Concomitant]
     Indication: SEASONAL ALLERGY
  13. ALLERGY MEDICATION [Concomitant]
     Indication: ALLERGY TO PLANTS

REACTIONS (2)
  - Stress urinary incontinence [Unknown]
  - Sinusitis [Not Recovered/Not Resolved]
